FAERS Safety Report 9404267 (Version 3)
Quarter: 2013Q4

REPORT INFORMATION
  Report Type: Spontaneous
  Country: US (occurrence: None)
  Receive Date: 20130711
  Receipt Date: 20131030
  Transmission Date: 20140711
  Serious: Yes (Hospitalization)
  Sender: FDA-Public Use
  Company Number: AXC-2013-000299

PATIENT
  Age: 75 Year
  Sex: Male
  Weight: 86.2 kg

DRUGS (7)
  1. ZENPEP [Suspect]
     Indication: PANCREATIC DISORDER
     Dosage: 150000 USP
     Route: 048
     Dates: start: 2013, end: 2013
  2. ZENPEP [Suspect]
     Indication: PAIN
     Dosage: 150000 USP
     Route: 048
     Dates: start: 2013, end: 2013
  3. ZENPEP [Suspect]
     Indication: AMYLASE INCREASED
     Dosage: 150000 USP
     Route: 048
     Dates: start: 2013, end: 2013
  4. ZENPEP [Suspect]
     Indication: LIPASE INCREASED
     Dosage: 150000 USP
     Route: 048
     Dates: start: 2013, end: 2013
  5. CREON [Suspect]
     Indication: PANCREATIC DISORDER
     Dosage: BEFORE MEALS
     Route: 048
     Dates: start: 2013, end: 2013
  6. FELODIPINE (FELODIPINE) [Concomitant]
  7. COZAAR (LOSARTAN POTASSIUM) (50 MILLIGRAM, TABLETS) (LOSARTAN POTASSIUM) [Concomitant]

REACTIONS (8)
  - Diarrhoea [None]
  - Dehydration [None]
  - Drug withdrawal syndrome [None]
  - Hypokalaemia [None]
  - Abdominal pain upper [None]
  - Treatment noncompliance [None]
  - Intentional underdose [None]
  - Drug effect decreased [None]
